FAERS Safety Report 21171422 (Version 2)
Quarter: 2022Q3

REPORT INFORMATION
  Report Type: Report from Study
  Country: IT (occurrence: IT)
  Receive Date: 20220804
  Receipt Date: 20220823
  Transmission Date: 20221027
  Serious: Yes (Other)
  Sender: FDA-Public Use
  Company Number: None

PATIENT
  Age: 83 Year
  Sex: Male

DRUGS (3)
  1. IRBESARTAN [Suspect]
     Active Substance: IRBESARTAN
     Indication: Product used for unknown indication
     Dosage: THE DURATION TP IS ASSIGNED EX OFFICIO., DURATION : 154 DAYS
     Dates: start: 20220101, end: 20220604
  2. BISOPROLOL [Suspect]
     Active Substance: BISOPROLOL
     Indication: Product used for unknown indication
     Dosage: THE DURATION TP IS ASSIGNED EX OFFICIO., BISOPROLOLO , DURATION : 154 DAYS
     Dates: start: 20220101, end: 20220604
  3. CANRENOIC ACID [Suspect]
     Active Substance: CANRENOIC ACID
     Indication: Product used for unknown indication
     Route: 065

REACTIONS (1)
  - Syncope [Recovered/Resolved]

NARRATIVE: CASE EVENT DATE: 20220604
